FAERS Safety Report 13581313 (Version 1)
Quarter: 2017Q2

REPORT INFORMATION
  Report Type: Spontaneous
  Country: US (occurrence: US)
  Receive Date: 20170525
  Receipt Date: 20170525
  Transmission Date: 20170830
  Serious: No
  Sender: FDA-Public Use
  Company Number: US-GLAXOSMITHKLINE-US2017GSK074140

PATIENT
  Age: 64 Year
  Sex: Female

DRUGS (1)
  1. VENTOLIN HFA [Suspect]
     Active Substance: ALBUTEROL SULFATE
     Indication: BRONCHITIS
     Dosage: 2 PUFF(S), QID
     Route: 055
     Dates: start: 201704

REACTIONS (7)
  - Device difficult to use [Unknown]
  - Product cleaning inadequate [Unknown]
  - Drug ineffective [Unknown]
  - Device use error [Unknown]
  - Wrong technique in product usage process [Unknown]
  - Drug dose omission [Unknown]
  - Underdose [Unknown]

NARRATIVE: CASE EVENT DATE: 201704
